FAERS Safety Report 6642104-9 (Version None)
Quarter: 2010Q1

REPORT INFORMATION
  Report Type: 
  Country: None (occurrence: None)
  Receive Date: 20100319
  Receipt Date: 20100309
  Transmission Date: 20100710
  Serious: Yes (Other)
  Sender: FDA-Public Use
  Company Number: DE-WYE-H14073310

PATIENT
  Sex: Female

DRUGS (7)
  1. PANTOZOL [Suspect]
     Dosage: OVERDOSE AMOUNT 10 TABLETS (40MG EACH) 400 MG TOTAL
     Route: 048
  2. PIPAMPERONE [Suspect]
     Dosage: OVERDOSE AMOUNT UNKNOWN
     Route: 048
  3. PREGABALIN [Suspect]
     Dosage: OVERDOSE AMOUNT UNKNOWN
     Route: 048
  4. CAFFEINE CITRATE [Suspect]
     Dosage: OVERDOSE AMOUNT UNKNOWN
     Route: 048
  5. QUETIAPINE [Suspect]
     Dosage: OVERDOSE AMOUNT UNKNOWN
     Route: 048
  6. ACETYLSALICYLIC ACID SRT [Suspect]
     Dosage: OVERDOSE AMOUNT UNKNOWN
     Route: 048
  7. PARACETAMOL [Suspect]
     Dosage: OVERDOSE AMOUNT UNKNOWN
     Route: 048

REACTIONS (6)
  - BODY TEMPERATURE DECREASED [None]
  - CONFUSIONAL STATE [None]
  - DRUG TOXICITY [None]
  - INTENTIONAL OVERDOSE [None]
  - SOMNOLENCE [None]
  - SUICIDE ATTEMPT [None]
